FAERS Safety Report 9409984 (Version 7)
Quarter: 2014Q2

REPORT INFORMATION
  Report Type: Spontaneous
  Country: US (occurrence: US)
  Receive Date: 20130719
  Receipt Date: 20140618
  Transmission Date: 20141212
  Serious: Yes (Hospitalization, Disabling, Other)
  Sender: FDA-Public Use
  Company Number: US-009507513-1307USA005973

PATIENT
  Sex: Female

DRUGS (8)
  1. FOSAMAX [Suspect]
     Indication: OSTEOPOROSIS
     Dosage: 70 MG, QW
     Route: 048
     Dates: start: 20001213, end: 2011
  2. FOSAMAX [Suspect]
     Indication: OSTEOPENIA
  3. ALENDRONATE SODIUM [Suspect]
     Indication: OSTEOPOROSIS
     Dosage: 70 MG, UNK
     Dates: start: 20080427, end: 20110714
  4. ALENDRONATE SODIUM [Suspect]
     Indication: OSTEOPENIA
  5. CALCIUM (UNSPECIFIED) (+) VITAMIN D (UNSPECIFIED) [Concomitant]
     Dosage: 1500MG/800IU
     Dates: start: 2000
  6. CALCIUM (UNSPECIFIED) (+) VITAMIN D (UNSPECIFIED) [Concomitant]
     Dosage: 630MG/250IU
  7. ASCORBIC ACID [Concomitant]
     Dosage: UNK
     Dates: start: 2003
  8. CALCITONIN [Concomitant]
     Indication: OSTEOPOROSIS

REACTIONS (38)
  - Intramedullary rod insertion [Unknown]
  - Anxiety [Unknown]
  - Depression [Unknown]
  - Mastectomy [Unknown]
  - Breast reconstruction [Unknown]
  - Breast reconstruction [Unknown]
  - Femur fracture [Recovered/Resolved]
  - Femur fracture [Recovering/Resolving]
  - Femur fracture [Unknown]
  - Low turnover osteopathy [Unknown]
  - Depression [Unknown]
  - Anxiety [Unknown]
  - Bursitis [Unknown]
  - Road traffic accident [Unknown]
  - Injury [Unknown]
  - Uterine leiomyoma [Unknown]
  - Haemorrhagic ovarian cyst [Unknown]
  - Endometriosis [Unknown]
  - Bursitis [Unknown]
  - Adjustment disorder [Unknown]
  - Generalised anxiety disorder [Unknown]
  - Palpitations [Unknown]
  - Senile osteoporosis [Unknown]
  - Vitamin D decreased [Unknown]
  - Pelvic deformity [Unknown]
  - Uterine leiomyoma [Unknown]
  - Weight bearing difficulty [Unknown]
  - Spinal deformity [Unknown]
  - Gait disturbance [Unknown]
  - Muscular weakness [Unknown]
  - Bursitis [Unknown]
  - Pelvic pain [Unknown]
  - Scar pain [Unknown]
  - Scar [Unknown]
  - Pain in extremity [Unknown]
  - Pain in extremity [Recovered/Resolved]
  - Muscle spasms [Unknown]
  - Back pain [Unknown]
